FAERS Safety Report 5851391-6 (Version None)
Quarter: 2008Q3

REPORT INFORMATION
  Report Type: 
  Country: None (occurrence: None)
  Receive Date: 20080820
  Receipt Date: 20080808
  Transmission Date: 20090109
  Serious: Yes (Hospitalization)
  Sender: FDA-Public Use
  Company Number: US-AVENTIS-200718066US

PATIENT
  Sex: Female

DRUGS (4)
  1. LANTUS [Suspect]
     Dosage: DOSE: 20 - 30
     Route: 058
     Dates: start: 20060101, end: 20080101
  2. LANTUS [Suspect]
     Route: 058
     Dates: start: 20080101
  3. LANOXIN [Suspect]
     Dosage: DOSE: UNK
     Dates: end: 20070201
  4. GLIPIZIDE [Concomitant]
     Dosage: DOSE: UNK

REACTIONS (4)
  - ABASIA [None]
  - BLOOD GLUCOSE DECREASED [None]
  - DIZZINESS [None]
  - HYPERHIDROSIS [None]
